FAERS Safety Report 4350720-2 (Version None)
Quarter: 2004Q2

REPORT INFORMATION
  Report Type: 
  Country: None (occurrence: None)
  Receive Date: 20040427
  Receipt Date: 19990104
  Transmission Date: 20050107
  Serious: Yes (Hospitalization, Disabling)
  Sender: FDA-Public Use
  Company Number: EZFA 00277

PATIENT
  Age: 5 Month
  Sex: Male

DRUGS (1)
  1. POVIDONE IODINE [Suspect]
     Dosage: 10 ML, CUTANEOUS
     Route: 003
     Dates: start: 19981015, end: 19981015

REACTIONS (4)
  - ERYTHEMA [None]
  - LOCAL SWELLING [None]
  - PENILE SWELLING [None]
  - SKIN DISORDER [None]
